FAERS Safety Report 21833215 (Version 1)
Quarter: 2023Q1

REPORT INFORMATION
  Report Type: Spontaneous
  Country: US (occurrence: US)
  Receive Date: 20230106
  Receipt Date: 20230106
  Transmission Date: 20230417
  Serious: No
  Sender: FDA-Public Use
  Company Number: US-NEUROCRINE BIOSCIENCES INC.-2022NBI09170

PATIENT

DRUGS (3)
  1. INGREZZA [Suspect]
     Active Substance: VALBENAZINE
     Indication: Tardive dyskinesia
     Dosage: 40 MILLIGRAM, QD
     Route: 048
     Dates: start: 20221107, end: 20221130
  2. INGREZZA [Suspect]
     Active Substance: VALBENAZINE
     Indication: Extrapyramidal disorder
  3. INGREZZA [Suspect]
     Active Substance: VALBENAZINE
     Indication: Movement disorder

REACTIONS (2)
  - Rash [Unknown]
  - Off label use [Unknown]
